FAERS Safety Report 5497971-1 (Version None)
Quarter: 2007Q4

REPORT INFORMATION
  Report Type: 
  Country: None (occurrence: None)
  Receive Date: 20071025
  Receipt Date: 20071016
  Transmission Date: 20080405
  Serious: Yes (Other)
  Sender: FDA-Public Use
  Company Number: JP-ASTRAZENECA-2007AP06244

PATIENT
  Age: 21236 Day
  Sex: Female
  Weight: 62 kg

DRUGS (4)
  1. CRESTOR [Suspect]
     Indication: HYPERLIPIDAEMIA
     Dosage: PATIENT MISSED SOME DOSES
     Route: 048
     Dates: start: 20070223, end: 20070606
  2. NORVASC [Concomitant]
     Indication: HYPERTENSION
     Route: 048
     Dates: start: 20050223
  3. BAYCARON [Concomitant]
     Indication: HYPERTENSION
     Route: 048
     Dates: start: 20050223
  4. ZETIA [Concomitant]
     Indication: HYPERLIPIDAEMIA
     Route: 048
     Dates: start: 20070723

REACTIONS (2)
  - CONDITION AGGRAVATED [None]
  - HYPOAESTHESIA [None]
